FAERS Safety Report 10387615 (Version 1)
Quarter: 2014Q1

REPORT INFORMATION
  Report Type: Spontaneous
  Country: US (occurrence: None)
  Receive Date: 20140306
  Receipt Date: 20140306
  Transmission Date: 20141002
  Serious: Yes (Other)
  Sender: FDA-Public Use
  Company Number: 163-21880-13121381

PATIENT
  Age: 71 Year
  Sex: Male
  Weight: 107.05 kg

DRUGS (7)
  1. REVLIMID ( LENALIDOMIDE) ( 25 MILLIGRAM, CAPSULES) [Suspect]
     Indication: PLASMA CELL MYELOMA
     Dates: start: 20130523
  2. LASIX (FUROSEMIDE) [Concomitant]
  3. VITAMINS [Concomitant]
  4. APIDRA (INSULIN GLULISINE) [Concomitant]
  5. LANTUS (INSULIN GLARGINE) [Concomitant]
  6. SOLOSTAR [Concomitant]
  7. VELCADE (BORTEZOMIB) [Concomitant]

REACTIONS (1)
  - Platelet count decreased [None]
